FAERS Safety Report 20845782 (Version 4)
Quarter: 2023Q4

REPORT INFORMATION
  Report Type: Other
  Country: AU (occurrence: AU)
  Receive Date: 20220518
  Receipt Date: 20231004
  Transmission Date: 20240110
  Serious: Yes (Hospitalization, Other)
  Sender: FDA-Public Use
  Company Number: AU-TOLMAR, INC.-22AU033697

PATIENT
  Age: 91 Year
  Sex: Male

DRUGS (1)
  1. ELIGARD [Suspect]
     Active Substance: LEUPROLIDE ACETATE
     Indication: Prostate cancer
     Dosage: 45 MILLIGRAM, Q 6 MONTH

REACTIONS (13)
  - Infection [Not Recovered/Not Resolved]
  - Haemorrhage [Unknown]
  - Device occlusion [Unknown]
  - Cardiac disorder [Unknown]
  - Haematuria [Unknown]
  - General physical health deterioration [Unknown]
  - Exercise tolerance decreased [Unknown]
  - Transient acantholytic dermatosis [Unknown]
  - Skin infection [Unknown]
  - Gait disturbance [Unknown]
  - Fall [Unknown]
  - Hot flush [Recovering/Resolving]
  - Dizziness [Unknown]

NARRATIVE: CASE EVENT DATE: 20220927
